FAERS Safety Report 9757913 (Version 2)
Quarter: 2014Q1

REPORT INFORMATION
  Report Type: Spontaneous
  Country: FR (occurrence: FR)
  Receive Date: 20131216
  Receipt Date: 20140218
  Transmission Date: 20141002
  Serious: Yes (Death, Hospitalization)
  Sender: FDA-Public Use
  Company Number: FR-JNJFOC-20131202060

PATIENT
  Age: 64 Year
  Sex: Female

DRUGS (14)
  1. RISPERDAL [Suspect]
     Indication: PRODUCT USED FOR UNKNOWN INDICATION
     Dosage: LONG-TERM TREATMENT
     Route: 048
     Dates: end: 20130829
  2. PREVISCAN (FLUINDIONE) [Suspect]
     Indication: ATRIAL FIBRILLATION
     Dosage: BETWEEN 2 OR 3 DOSES
     Route: 048
     Dates: end: 20130829
  3. TAHOR [Suspect]
     Indication: HYPERCHOLESTEROLAEMIA
     Dosage: LONG-TERM TREATMENT
     Route: 048
     Dates: end: 20130909
  4. ARICEPT [Suspect]
     Indication: DEMENTIA
     Dosage: LONG-TERM TREATMENT
     Route: 048
     Dates: end: 20130829
  5. EBIXA [Suspect]
     Indication: DEMENTIA
     Dosage: LONG-TERM TREATMENT
     Route: 048
     Dates: end: 20130829
  6. MIANSERIN [Suspect]
     Indication: PRODUCT USED FOR UNKNOWN INDICATION
     Dosage: LONG-TERM TREATMENT
     Route: 048
     Dates: end: 20130829
  7. TAREG [Suspect]
     Indication: HYPERTENSION
     Dosage: LONG-TERM TREATMENT
     Route: 048
     Dates: end: 20130829
  8. LASILIX [Suspect]
     Indication: HYPERTENSION
     Dosage: LONG-TERM TREATMENT
     Route: 048
     Dates: end: 20130829
  9. CARDENSIEL [Suspect]
     Indication: HYPERTENSION
     Dosage: LONG-TERM TREATMENT
     Route: 048
     Dates: end: 20130829
  10. INEXIUM [Suspect]
     Indication: PRODUCT USED FOR UNKNOWN INDICATION
     Dosage: LONG-TERM TREATMENT
     Route: 048
     Dates: end: 20130829
  11. LANTUS [Suspect]
     Indication: PRODUCT USED FOR UNKNOWN INDICATION
     Dosage: 100 U/ML
     Route: 058
     Dates: end: 20130829
  12. ZYLORIC [Suspect]
     Indication: HYPERURICAEMIA
     Dosage: LONG-TERM TREATMENT
     Route: 048
     Dates: end: 20130829
  13. NOVORAPID [Concomitant]
     Route: 065
     Dates: end: 20130829
  14. ATHYMIL [Concomitant]
     Route: 065
     Dates: end: 20130829

REACTIONS (1)
  - Subdural haematoma [Fatal]
